FAERS Safety Report 8583829-8 (Version None)
Quarter: 2012Q3

REPORT INFORMATION
  Report Type: 
  Country: None (occurrence: None)
  Receive Date: 20120810
  Receipt Date: 20120801
  Transmission Date: 20120928
  Serious: Yes (Hospitalization, Disabling, Other)
  Sender: FDA-Public Use
  Company Number: US-MERCK-1206USA00883

PATIENT

DRUGS (6)
  1. FOSAMAX PLUS D [Suspect]
     Indication: OSTEOPOROSIS
     Dosage: UNK MG, UNK
     Route: 048
     Dates: end: 20090915
  2. FOSAMAX PLUS D [Suspect]
     Indication: OSTEOPENIA
  3. CALCIUM (UNSPECIFIED) [Concomitant]
     Indication: OSTEOPOROSIS
  4. FOSAMAX [Suspect]
     Indication: OSTEOPOROSIS
     Dosage: 70 MG, QW
     Dates: start: 20001212, end: 20090915
  5. CALCIUM (UNSPECIFIED) [Concomitant]
     Indication: OSTEOPENIA
  6. FOSAMAX [Suspect]
     Indication: OSTEOPENIA
     Dosage: 10 MG, QD
     Route: 048
     Dates: start: 19950101, end: 20001212

REACTIONS (24)
  - FALLOPIAN TUBE DISORDER [None]
  - GALLBLADDER DISORDER [None]
  - UTERINE DISORDER [None]
  - HYPERCHOLESTEROLAEMIA [None]
  - CONSTIPATION [None]
  - INGROWING NAIL [None]
  - HYPERTENSION [None]
  - INSOMNIA [None]
  - OESOPHAGITIS [None]
  - GASTROOESOPHAGEAL REFLUX DISEASE [None]
  - BREAST CANCER [None]
  - LIMB INJURY [None]
  - INDIFFERENCE [None]
  - PSYCHOTIC DISORDER [None]
  - HYPOTHYROIDISM [None]
  - BACK PAIN [None]
  - DEVICE FAILURE [None]
  - DIABETES MELLITUS [None]
  - FEMUR FRACTURE [None]
  - DEPRESSION [None]
  - ANXIETY [None]
  - OSTEOARTHRITIS [None]
  - FALL [None]
  - SPINAL DISORDER [None]
